FAERS Safety Report 8030957-1 (Version None)
Quarter: 2012Q1

REPORT INFORMATION
  Report Type: 
  Country: None (occurrence: None)
  Receive Date: 20120109
  Receipt Date: 20120102
  Transmission Date: 20120608
  Serious: Yes (Hospitalization)
  Sender: FDA-Public Use
  Company Number: FR-BRISTOL-MYERS SQUIBB COMPANY-16328916

PATIENT
  Age: 74 Year
  Sex: Female

DRUGS (3)
  1. ANAFRANIL [Concomitant]
     Dates: start: 20101016, end: 20101026
  2. LITHIUM CARBONATE [Suspect]
     Route: 048
     Dates: start: 19900101, end: 20101026
  3. IRBESARTAN [Suspect]
     Route: 048
     Dates: end: 20101026

REACTIONS (6)
  - ENCEPHALOPATHY [None]
  - OVERDOSE [None]
  - CONFUSIONAL STATE [None]
  - DISORIENTATION [None]
  - RENAL FAILURE ACUTE [None]
  - NEPHROGENIC DIABETES INSIPIDUS [None]
